FAERS Safety Report 6116941-3 (Version None)
Quarter: 2009Q1

REPORT INFORMATION
  Report Type: 
  Country: None (occurrence: None)
  Receive Date: 20090314
  Receipt Date: 20081229
  Transmission Date: 20090719
  Serious: No
  Sender: FDA-Public Use
  Company Number: US-ABBOTT-08P-163-0495205-00

PATIENT
  Sex: Male
  Weight: 69.462 kg

DRUGS (1)
  1. HUMIRA [Suspect]
     Indication: PSORIASIS
     Dates: start: 20081111

REACTIONS (3)
  - INJECTION SITE EXTRAVASATION [None]
  - RASH PAPULAR [None]
  - RASH PRURITIC [None]
